FAERS Safety Report 6895956-1 (Version None)
Quarter: 2010Q3

REPORT INFORMATION
  Report Type: 
  Country: None (occurrence: None)
  Receive Date: 20100802
  Receipt Date: 20100723
  Transmission Date: 20110219
  Serious: Yes (Hospitalization, Other)
  Sender: FDA-Public Use
  Company Number: JP-ABBOTT-10P-087-0656756-00

PATIENT
  Sex: Female
  Weight: 41.5 kg

DRUGS (15)
  1. HUMIRA [Suspect]
     Indication: RHEUMATOID ARTHRITIS
     Route: 058
     Dates: start: 20100113, end: 20100519
  2. MIZORIBINE [Concomitant]
     Indication: RHEUMATOID ARTHRITIS
     Dates: end: 20100519
  3. PREDNISOLONE [Concomitant]
     Indication: RHEUMATOID ARTHRITIS
     Dosage: 10 MG DAILY
     Dates: end: 20100113
  4. PREDNISOLONE [Concomitant]
     Dosage: 9 MG DAILY
     Dates: start: 20100114, end: 20100120
  5. PREDNISOLONE [Concomitant]
     Dosage: 10 MG DAILY
     Dates: start: 20100121, end: 20100121
  6. PREDNISOLONE [Concomitant]
     Dosage: 9 MG DAILY
     Dates: start: 20100122, end: 20100127
  7. PREDNISOLONE [Concomitant]
     Dosage: 8 MG DAILY
     Dates: start: 20100128, end: 20100224
  8. PREDNISOLONE [Concomitant]
     Dosage: 7 MG DAILY
     Dates: start: 20100225, end: 20100324
  9. PREDNISOLONE [Concomitant]
     Dosage: 6 MG DAILY
     Dates: start: 20100325, end: 20100428
  10. PREDNISOLONE [Concomitant]
     Dosage: 5 MG DAILY
     Dates: start: 20100429
  11. WARFARIN POTASSIUM [Concomitant]
     Indication: PRODUCT USED FOR UNKNOWN INDICATION
  12. CANDESARTAN CILEXETIL [Concomitant]
     Indication: PRODUCT USED FOR UNKNOWN INDICATION
  13. DONEPEZIL HYDROCHLORIDE [Concomitant]
     Indication: PRODUCT USED FOR UNKNOWN INDICATION
  14. ETIZOLAM [Concomitant]
     Indication: INSOMNIA
  15. VERAPAMIL HYDROCHLOIRDE [Concomitant]
     Indication: PRODUCT USED FOR UNKNOWN INDICATION
     Dates: start: 20100127

REACTIONS (4)
  - CHEST DISCOMFORT [None]
  - DECREASED APPETITE [None]
  - MALAISE [None]
  - PYREXIA [None]
